FAERS Safety Report 23835574 (Version 1)
Quarter: 2024Q2

REPORT INFORMATION
  Report Type: Spontaneous
  Country: GB (occurrence: GB)
  Receive Date: 20240509
  Receipt Date: 20240509
  Transmission Date: 20240715
  Serious: Yes (Hospitalization, Other)
  Sender: FDA-Public Use
  Company Number: GB-HIKMA PHARMACEUTICALS-GB-H14001-24-03840

PATIENT
  Sex: Male
  Weight: 1.147 kg

DRUGS (1)
  1. ACYCLOVIR [Suspect]
     Active Substance: ACYCLOVIR
     Indication: Herpes simplex
     Dosage: 20 MILLIGRAM/KILOGRAM, TID
     Route: 042

REACTIONS (7)
  - Neonatal respiratory failure [Unknown]
  - C-reactive protein increased [Unknown]
  - Dehydration [Unknown]
  - Jaundice neonatal [Unknown]
  - Sepsis neonatal [Unknown]
  - Pain [Unknown]
  - Ophthalmic herpes simplex [Unknown]
